FAERS Safety Report 9485460 (Version 3)
Quarter: 2013Q4

REPORT INFORMATION
  Report Type: Spontaneous
  Country: US (occurrence: US)
  Receive Date: 20130829
  Receipt Date: 20131104
  Transmission Date: 20140711
  Serious: Yes (Hospitalization)
  Sender: FDA-Public Use
  Company Number: US-BIOGENIDEC-2013BI078879

PATIENT
  Age: 60 Year
  Sex: Female

DRUGS (2)
  1. TYSABRI [Suspect]
     Indication: MULTIPLE SCLEROSIS
     Route: 042
     Dates: start: 20101115
  2. AMPYRA [Concomitant]

REACTIONS (4)
  - Grand mal convulsion [Recovered/Resolved]
  - Loss of consciousness [Recovered/Resolved]
  - Postictal state [Recovered/Resolved]
  - Convulsion [Recovered/Resolved]
